FAERS Safety Report 19864523 (Version 3)
Quarter: 2021Q4

REPORT INFORMATION
  Report Type: Spontaneous
  Country: JP (occurrence: JP)
  Receive Date: 20210921
  Receipt Date: 20211014
  Transmission Date: 20220303
  Serious: Yes (Other)
  Sender: FDA-Public Use
  Company Number: JP-PFIZER INC-202101183986

PATIENT
  Age: 65 Year
  Sex: Female

DRUGS (18)
  1. TOVIAZ [Suspect]
     Active Substance: FESOTERODINE FUMARATE
     Indication: Hypertonic bladder
     Dosage: 4 MG
     Route: 048
  2. CELECOXIB [Suspect]
     Active Substance: CELECOXIB
     Indication: Pain in extremity
     Dosage: UNK
  3. CELECOXIB [Suspect]
     Active Substance: CELECOXIB
     Indication: Pain in extremity
  4. CELECOXIB [Suspect]
     Active Substance: CELECOXIB
     Indication: Back pain
  5. LYRICA [Suspect]
     Active Substance: PREGABALIN
     Indication: Pain in extremity
     Dosage: UNK
  6. LYRICA [Suspect]
     Active Substance: PREGABALIN
     Indication: Pain in extremity
  7. LYRICA [Suspect]
     Active Substance: PREGABALIN
     Indication: Back pain
  8. LOXOPROFEN SODIUM [Suspect]
     Active Substance: LOXOPROFEN SODIUM
     Indication: Pain in extremity
     Dosage: UNK
  9. LOXOPROFEN SODIUM [Suspect]
     Active Substance: LOXOPROFEN SODIUM
     Indication: Pain in extremity
  10. LOXOPROFEN SODIUM [Suspect]
     Active Substance: LOXOPROFEN SODIUM
     Indication: Back pain
  11. VOLTAREN [Suspect]
     Active Substance: DICLOFENAC SODIUM
     Indication: Pain in extremity
     Dosage: UNK
  12. VOLTAREN [Suspect]
     Active Substance: DICLOFENAC SODIUM
     Indication: Pain in extremity
  13. VOLTAREN [Suspect]
     Active Substance: DICLOFENAC SODIUM
     Indication: Back pain
  14. ESTAZOLAM [Concomitant]
     Active Substance: ESTAZOLAM
     Indication: Emotional distress
     Dosage: UNK
     Route: 048
  15. ETIZOLAM [Concomitant]
     Active Substance: ETIZOLAM
     Indication: Emotional distress
     Dosage: UNK
     Route: 048
  16. ZOLPIDEM TARTRATE [Concomitant]
     Active Substance: ZOLPIDEM TARTRATE
     Indication: Emotional distress
     Dosage: UNK
     Route: 048
  17. CERCINE [Concomitant]
     Active Substance: DIAZEPAM
     Indication: Emotional distress
     Dosage: UNK
     Route: 048
  18. INSULIN NOS [Concomitant]
     Active Substance: INSULIN NOS
     Indication: Diabetes mellitus
     Dosage: UNK

REACTIONS (5)
  - Renal impairment [Recovered/Resolved]
  - Urinary retention [Recovered/Resolved]
  - Glomerular filtration rate decreased [Recovered/Resolved]
  - Constipation [Recovered/Resolved]
  - Dysuria [Recovered/Resolved]
